FAERS Safety Report 8386485-7 (Version None)
Quarter: 2012Q2

REPORT INFORMATION
  Report Type: 
  Country: None (occurrence: None)
  Receive Date: 20120525
  Receipt Date: 20120521
  Transmission Date: 20120825
  Serious: Yes (Hospitalization)
  Sender: FDA-Public Use
  Company Number: FR-PFIZER INC-2012122015

PATIENT
  Age: 29 Year
  Sex: Female

DRUGS (2)
  1. ACETAMINOPHEN [Suspect]
     Indication: ABDOMINAL PAIN
     Dosage: 8 G, SINGLE
     Route: 048
     Dates: start: 20120324, end: 20120324
  2. ADVIL [Suspect]
     Indication: ABDOMINAL PAIN
     Dosage: 8 DF, SINGLE
     Route: 048
     Dates: start: 20120324, end: 20120324

REACTIONS (4)
  - DRUG-INDUCED LIVER INJURY [None]
  - CYTOLYTIC HEPATITIS [None]
  - RENAL FAILURE ACUTE [None]
  - RENAL TUBULAR NECROSIS [None]
